FAERS Safety Report 26081321 (Version 1)
Quarter: 2025Q4

REPORT INFORMATION
  Report Type: Spontaneous
  Country: EU (occurrence: EU)
  Receive Date: 20251124
  Receipt Date: 20251124
  Transmission Date: 20260118
  Serious: Yes (Hospitalization)
  Sender: ALKEM
  Company Number: EU-ALKEM LABORATORIES LIMITED-DE-ALKEM-2025-01137

PATIENT
  Age: 68 Year
  Sex: Male

DRUGS (2)
  1. RASAGILINE MESYLATE [Suspect]
     Active Substance: RASAGILINE MESYLATE
     Indication: Product used for unknown indication
     Dosage: UNK
     Route: 065
  2. FOSCARBIDOPA\FOSLEVODOPA [Suspect]
     Active Substance: FOSCARBIDOPA\FOSLEVODOPA
     Indication: Parkinson^s disease
     Dosage: UNK
     Route: 058
     Dates: start: 20240523

REACTIONS (3)
  - Rash [Not Recovered/Not Resolved]
  - Adverse drug reaction [Unknown]
  - Overdose [Unknown]

NARRATIVE: CASE EVENT DATE: 20250119
